FAERS Safety Report 20446344 (Version 1)
Quarter: 2022Q1

REPORT INFORMATION
  Report Type: Spontaneous
  Country: IL (occurrence: IL)
  Receive Date: 20220208
  Receipt Date: 20220208
  Transmission Date: 20220423
  Serious: Yes (Death, Hospitalization, Disabling, Other)
  Sender: FDA-Public Use
  Company Number: IL-009507513-2202ISR001328

PATIENT
  Age: 74 Year
  Sex: Female

DRUGS (3)
  1. KEYTRUDA [Suspect]
     Active Substance: PEMBROLIZUMAB
     Indication: Uterine cancer
     Dosage: 200 MILLIGRAM, Q3W
     Dates: start: 202109
  2. LENVATINIB MESYLATE [Suspect]
     Active Substance: LENVATINIB MESYLATE
     Indication: Uterine cancer
     Dosage: 20 MILLIGRAM, QD
     Route: 048
     Dates: start: 202109, end: 2021
  3. LENVATINIB MESYLATE [Suspect]
     Active Substance: LENVATINIB MESYLATE
     Dosage: DECREASED TO 10 MILLIGRAM PER DAY
     Route: 048
     Dates: start: 2021, end: 2021

REACTIONS (13)
  - Death [Fatal]
  - Wheelchair user [Unknown]
  - Urinary incontinence [Unknown]
  - Anal incontinence [Unknown]
  - Malignant neoplasm progression [Unknown]
  - Colitis [Unknown]
  - Feeding disorder [Unknown]
  - General physical health deterioration [Unknown]
  - Weight decreased [Unknown]
  - Abdominal pain upper [Unknown]
  - Asthenia [Unknown]
  - Nausea [Unknown]
  - Diarrhoea [Recovering/Resolving]

NARRATIVE: CASE EVENT DATE: 20210901
